FAERS Safety Report 21170377 (Version 2)
Quarter: 2022Q3

REPORT INFORMATION
  Report Type: Report from Study
  Country: DE (occurrence: DE)
  Receive Date: 20220804
  Receipt Date: 20220808
  Transmission Date: 20221027
  Serious: Yes (Hospitalization)
  Sender: FDA-Public Use
  Company Number: DE-KOREA IPSEN Pharma-2022-18348

PATIENT

DRUGS (7)
  1. CABOZANTINIB [Suspect]
     Active Substance: CABOZANTINIB
     Indication: Renal cell carcinoma
     Dosage: 40 MG, QD
     Route: 048
     Dates: start: 20220210, end: 20220314
  2. CABOZANTINIB [Suspect]
     Active Substance: CABOZANTINIB
     Dosage: 20 MG, QD
     Route: 048
     Dates: start: 20220427, end: 20220524
  3. NIVOLUMAB [Suspect]
     Active Substance: NIVOLUMAB
     Indication: Renal cell carcinoma
     Dosage: 240 MG
     Route: 042
     Dates: start: 20220302
  4. LEVOTHYROXINE SODIUM [Concomitant]
     Active Substance: LEVOTHYROXINE SODIUM
     Indication: Hypothyroidism
     Dosage: 0.05 MG, QD
  5. ISOPTIN [Concomitant]
     Active Substance: VERAPAMIL HYDROCHLORIDE
     Indication: Arrhythmia
     Dosage: 1.5 MG, QD
     Route: 065
  6. BENZTHIAZIDE\TRIAMTERENE [Concomitant]
     Active Substance: BENZTHIAZIDE\TRIAMTERENE
     Indication: Diuretic therapy
     Dosage: 50 MG, QD
  7. MARCUMAR [Concomitant]
     Active Substance: PHENPROCOUMON
     Indication: Arrhythmia supraventricular
     Dosage: QD
     Dates: start: 20000101

REACTIONS (6)
  - General physical health deterioration [Recovered/Resolved]
  - Oral pain [Recovered/Resolved]
  - Proctalgia [Recovered/Resolved]
  - Anal inflammation [Recovered/Resolved]
  - Peripheral sensory neuropathy [Not Recovered/Not Resolved]
  - Stomatitis [Recovered/Resolved]

NARRATIVE: CASE EVENT DATE: 20220301
